FAERS Safety Report 9394857 (Version 1)
Quarter: 2013Q3

REPORT INFORMATION
  Report Type: Spontaneous
  Country: GB (occurrence: None)
  Receive Date: 20130705
  Receipt Date: 20130705
  Transmission Date: 20140515
  Serious: Yes (Other)
  Sender: FDA-Public Use
  Company Number: GB-1199002

PATIENT
  Age: 71 Year
  Sex: Female

DRUGS (7)
  1. AZOPT 1 % OPHTHALMIC SUSPENSION (AZOPT 1%) [Suspect]
     Indication: GLAUCOMA
     Route: 047
  2. ALPHAGAN [Suspect]
     Indication: GLAUCOMA
  3. COSOPT [Suspect]
     Indication: GLAUCOMA
     Route: 050
  4. TRUSOPT [Suspect]
     Indication: GLAUCOMA
  5. TIMOLOL (TIMOLOL) (NONE) [Concomitant]
     Indication: GLAUCOMA
  6. XALATAN [Suspect]
     Indication: GLAUCOMA
     Route: 047
  7. AMITRIPTYLINE [Concomitant]

REACTIONS (6)
  - Drug ineffective [None]
  - Glaucoma [None]
  - Condition aggravated [None]
  - Choroidal detachment [None]
  - Eye pain [None]
  - Eye operation complication [None]
